FAERS Safety Report 17649339 (Version 1)
Quarter: 2020Q2

REPORT INFORMATION
  Report Type: Spontaneous
  Country: US (occurrence: US)
  Receive Date: 20200408
  Receipt Date: 20200408
  Transmission Date: 20200713
  Serious: Yes (Death)
  Sender: FDA-Public Use
  Company Number: US-BOIRON INC.-2020BOR00099

PATIENT
  Sex: Female

DRUGS (1)
  1. SYMPHYTUM OFFICINALE [Suspect]
     Active Substance: COMFREY ROOT
     Indication: PAIN

REACTIONS (4)
  - Acute respiratory failure [Fatal]
  - Acute kidney injury [Fatal]
  - Hypertension [Fatal]
  - Metastatic neoplasm [Fatal]
